FAERS Safety Report 8948048 (Version 1)
Quarter: 2012Q4

REPORT INFORMATION
  Report Type: 
  Country: US (occurrence: US)
  Receive Date: 20121204
  Receipt Date: 20121204
  Transmission Date: 20130627
  Serious: No
  Sender: FDA-Public Use
  Company Number: US-ASTRAZENECA-2012SE12224

PATIENT
  Age: 66 Year
  Sex: Male

DRUGS (6)
  1. NEXIUM [Suspect]
     Route: 048
  2. NEXIUM [Suspect]
     Route: 048
  3. NEXIUM [Suspect]
     Route: 048
  4. CRESTOR [Suspect]
     Route: 048
  5. CRESTOR [Suspect]
     Route: 048
  6. LISINOPRIL [Concomitant]

REACTIONS (8)
  - Gastrooesophageal reflux disease [Unknown]
  - Feeling abnormal [Unknown]
  - Hypertension [Unknown]
  - Blood cholesterol increased [Unknown]
  - Pain in extremity [Unknown]
  - Insomnia [Unknown]
  - Drug dose omission [Unknown]
  - Drug ineffective [Unknown]
